FAERS Safety Report 18579389 (Version 1)
Quarter: 2020Q4

REPORT INFORMATION
  Report Type: Report from Study
  Country: IT (occurrence: IT)
  Receive Date: 20201204
  Receipt Date: 20201204
  Transmission Date: 20210114
  Serious: Yes (Other)
  Sender: FDA-Public Use
  Company Number: IT-MYLANLABS-2020M1025285

PATIENT
  Age: 36 Year
  Sex: Female

DRUGS (2)
  1. COPEMYLTRI [Suspect]
     Active Substance: GLATIRAMER ACETATE
     Dosage: 40 MILLIGRAM, Q2D
     Route: 058
     Dates: start: 20201101
  2. COPEMYLTRI [Suspect]
     Active Substance: GLATIRAMER ACETATE
     Indication: MULTIPLE SCLEROSIS
     Dosage: 3 DOSAGE FORM, QW
     Route: 030
     Dates: start: 20191201

REACTIONS (3)
  - Dyspnoea [Not Recovered/Not Resolved]
  - Bronchospasm [Unknown]
  - Tachycardia [Unknown]

NARRATIVE: CASE EVENT DATE: 20200203
